FAERS Safety Report 7573786-5 (Version None)
Quarter: 2011Q2

REPORT INFORMATION
  Report Type: 
  Country: None (occurrence: None)
  Receive Date: 20110627
  Receipt Date: 20110614
  Transmission Date: 20111010
  Serious: Yes (Hospitalization)
  Sender: FDA-Public Use
  Company Number: FR-CELGENEUS-056-21880-11061858

PATIENT
  Sex: Male

DRUGS (6)
  1. VALACYCLOVIR HYDROCHLORIDE [Suspect]
     Route: 048
  2. VALACYCLOVIR HYDROCHLORIDE [Suspect]
     Dosage: .4286 TABLET
     Route: 048
  3. BACTRIM DS [Suspect]
     Dosage: 2 TABLET
     Route: 048
  4. REVLIMID [Suspect]
     Dosage: 5 MILLIGRAM
     Route: 048
  5. LYRICA [Suspect]
     Dosage: 2 DOSAGE FORMS
     Route: 065
  6. REVLIMID [Suspect]
     Dosage: 10 MILLIGRAM
     Route: 048
     Dates: start: 20110419

REACTIONS (1)
  - TUBULOINTERSTITIAL NEPHRITIS [None]
